FAERS Safety Report 12458862 (Version 1)
Quarter: 2016Q2

REPORT INFORMATION
  Report Type: Spontaneous
  Country: IT (occurrence: IT)
  Receive Date: 20160613
  Receipt Date: 20160613
  Transmission Date: 20160815
  Serious: Yes (Other)
  Sender: FDA-Public Use
  Company Number: IT-ACCORD-041406

PATIENT
  Age: 63 Year
  Sex: Male

DRUGS (2)
  1. CICLOSPORIN [Suspect]
     Active Substance: CYCLOSPORINE
     Indication: RENAL TRANSPLANT
  2. MYCOPHENOLIC ACID. [Suspect]
     Active Substance: MYCOPHENOLIC ACID
     Indication: RENAL TRANSPLANT

REACTIONS (2)
  - Erythema [Recovered/Resolved]
  - Mycobacterium chelonae infection [Recovered/Resolved]
